FAERS Safety Report 14427521 (Version 2)
Quarter: 2019Q1

REPORT INFORMATION
  Report Type: Spontaneous
  Country: US (occurrence: US)
  Receive Date: 20180123
  Receipt Date: 20190303
  Transmission Date: 20190417
  Serious: No
  Sender: FDA-Public Use
  Company Number: US-IMPAX LABORATORIES, INC-2017-IPXL-03854

PATIENT
  Age: 78 Year
  Sex: Female
  Weight: 73 kg

DRUGS (7)
  1. RYTARY [Suspect]
     Active Substance: CARBIDOPA\LEVODOPA
     Dosage: 36.25MG/145MG, 1 CAPSULE 3 TIMES A DAY
     Route: 048
  2. RYTARY [Suspect]
     Active Substance: CARBIDOPA\LEVODOPA
     Dosage: 36.25/145MG, 2 CAPSULE 4 TIMES DAILY
     Route: 048
     Dates: start: 201712, end: 201712
  3. RYTARY [Suspect]
     Active Substance: CARBIDOPA\LEVODOPA
     Indication: PARKINSON^S DISEASE
     Dosage: 23.75MG/95MG, 1 CAPSULE 3 TIMES A DAY
     Route: 048
     Dates: start: 2017, end: 2017
  4. RYTARY [Suspect]
     Active Substance: CARBIDOPA\LEVODOPA
     Dosage: 36.25MG/145MG, 1 CAPSULE 3 TIMES A DAY
     Route: 048
     Dates: start: 201712
  5. PRAMIPEXOLE. [Concomitant]
     Active Substance: PRAMIPEXOLE
     Indication: PARKINSON^S DISEASE
     Dosage: 1 MG, UNK
     Route: 065
  6. XARELTO [Concomitant]
     Active Substance: RIVAROXABAN
     Indication: ANTICOAGULANT THERAPY
     Dosage: 20 MG, UNK
     Route: 065
     Dates: start: 2013
  7. PROPRANOLOL [Concomitant]
     Active Substance: PROPRANOLOL HYDROCHLORIDE
     Indication: ESSENTIAL TREMOR
     Dosage: 20 MG, UNK
     Route: 065
     Dates: start: 2002

REACTIONS (4)
  - Intentional product use issue [Unknown]
  - Tremor [Recovered/Resolved]
  - Drug ineffective [Unknown]
  - Dystonia [Recovered/Resolved]
